FAERS Safety Report 16159090 (Version 1)
Quarter: 2019Q2

REPORT INFORMATION
  Report Type: Spontaneous
  Country: GB (occurrence: GB)
  Receive Date: 20190404
  Receipt Date: 20190404
  Transmission Date: 20190711
  Serious: Yes (Other)
  Sender: FDA-Public Use
  Company Number: GB-TEVA-2019-GB-1032813

PATIENT
  Age: 78 Year
  Sex: Female
  Weight: 72 kg

DRUGS (2)
  1. FLECAINIDE ACETATE. [Concomitant]
     Active Substance: FLECAINIDE ACETATE
     Indication: ATRIAL FIBRILLATION
  2. BISOPROLOL FUMARATE. [Suspect]
     Active Substance: BISOPROLOL FUMARATE
     Indication: ATRIAL FIBRILLATION
     Route: 048
     Dates: start: 20180626, end: 20190213

REACTIONS (5)
  - Heart rate increased [Recovered/Resolved with Sequelae]
  - Hypersensitivity vasculitis [Recovered/Resolved with Sequelae]
  - Rash pustular [Recovered/Resolved with Sequelae]
  - Pyrexia [Recovered/Resolved with Sequelae]
  - Dermatitis [Recovered/Resolved with Sequelae]

NARRATIVE: CASE EVENT DATE: 20190215
